FAERS Safety Report 15491741 (Version 13)
Quarter: 2023Q2

REPORT INFORMATION
  Report Type: Spontaneous
  Country: US (occurrence: US)
  Receive Date: 20181012
  Receipt Date: 20230627
  Transmission Date: 20230721
  Serious: No
  Sender: FDA-Public Use
  Company Number: US-BIOGEN-2018BI00643130

PATIENT
  Age: 64 Year
  Sex: Female

DRUGS (2)
  1. TYSABRI [Suspect]
     Active Substance: NATALIZUMAB
     Indication: Multiple sclerosis
     Dosage: INFUSED OVER 1 HOUR
     Route: 050
     Dates: start: 20110217, end: 20160106
  2. TYSABRI [Suspect]
     Active Substance: NATALIZUMAB
     Dosage: INFUSED OVER 1 HOUR
     Route: 050
     Dates: start: 20171218

REACTIONS (18)
  - Product dose omission in error [Not Recovered/Not Resolved]
  - Wrong technique in product usage process [Not Recovered/Not Resolved]
  - Therapeutic response shortened [Unknown]
  - Product dose omission issue [Recovered/Resolved]
  - Stress [Not Recovered/Not Resolved]
  - Poor venous access [Not Recovered/Not Resolved]
  - Paranoia [Not Recovered/Not Resolved]
  - Memory impairment [Unknown]
  - Vein collapse [Unknown]
  - Pain [Unknown]
  - Emotional distress [Unknown]
  - Intervertebral disc protrusion [Unknown]
  - Motor dysfunction [Unknown]
  - Infusion site extravasation [Unknown]
  - Contusion [Unknown]
  - Feeling abnormal [Unknown]
  - Multiple sclerosis relapse [Unknown]
  - Fatigue [Unknown]

NARRATIVE: CASE EVENT DATE: 20180901
